FAERS Safety Report 9420293 (Version 1)
Quarter: 2013Q3

REPORT INFORMATION
  Report Type: Spontaneous
  Country: IT (occurrence: IT)
  Receive Date: 20130725
  Receipt Date: 20130725
  Transmission Date: 20140515
  Serious: Yes (Other)
  Sender: FDA-Public Use
  Company Number: IT-TEVA-420155ISR

PATIENT
  Age: 28 Year
  Sex: Male
  Weight: 80 kg

DRUGS (2)
  1. SERTRALINE [Suspect]
     Dosage: 750 MILLIGRAM DAILY;
     Route: 048
     Dates: start: 20130624, end: 20130624
  2. HALDOL [Suspect]
     Dosage: 20 MILLIGRAM DAILY;
     Route: 048
     Dates: start: 20130624, end: 20130624

REACTIONS (2)
  - Self injurious behaviour [Unknown]
  - Drug abuse [Unknown]
